FAERS Safety Report 23300376 (Version 2)
Quarter: 2023Q4

REPORT INFORMATION
  Report Type: Other
  Country: DE (occurrence: None)
  Receive Date: 20231215
  Receipt Date: 20231218
  Transmission Date: 20240109
  Serious: No
  Sender: FDA-Public Use
  Company Number: DE-ROCHE-3473055

PATIENT
  Age: 28 Year
  Sex: Female

DRUGS (6)
  1. OCREVUS [Suspect]
     Active Substance: OCRELIZUMAB
     Indication: Relapsing multiple sclerosis
     Route: 042
     Dates: start: 20200114, end: 20200128
  2. OCREVUS [Suspect]
     Active Substance: OCRELIZUMAB
     Dosage: LAST DOSE 25/FEB/2022
     Route: 042
     Dates: start: 20200731
  3. GLATIRAMER ACETATE [Concomitant]
     Active Substance: GLATIRAMER ACETATE
  4. INTERFERON BETA-1B [Concomitant]
     Active Substance: INTERFERON BETA-1B
  5. AZATHIOPRINE [Concomitant]
     Active Substance: AZATHIOPRINE
  6. FINGOLIMOD [Concomitant]
     Active Substance: FINGOLIMOD

REACTIONS (1)
  - COVID-19 [Recovered/Resolved]

NARRATIVE: CASE EVENT DATE: 20211101
